FAERS Safety Report 9022058 (Version 1)
Quarter: 2013Q1

REPORT INFORMATION
  Report Type: Spontaneous
  Country: DE (occurrence: DE)
  Receive Date: 20130119
  Receipt Date: 20130119
  Transmission Date: 20140127
  Serious: Yes (Other)
  Sender: FDA-Public Use
  Company Number: DE-009507513-1301DEU007323

PATIENT
  Sex: Male

DRUGS (4)
  1. ISENTRESS [Suspect]
     Indication: HIV INFECTION
     Dosage: 400 MG, BID
     Route: 048
  2. REYATAZ [Concomitant]
     Indication: HIV INFECTION
     Route: 048
  3. TRUVADA [Concomitant]
     Indication: HIV INFECTION
     Route: 048
  4. NORVIR [Concomitant]
     Indication: HIV INFECTION
     Route: 048

REACTIONS (1)
  - Pancytopenia [Unknown]
